FAERS Safety Report 6990891-2 (Version None)
Quarter: 2010Q3

REPORT INFORMATION
  Report Type: 
  Country: None (occurrence: None)
  Receive Date: 20100916
  Receipt Date: 20090602
  Transmission Date: 20110219
  Serious: Yes (Other)
  Sender: FDA-Public Use
  Company Number: US-WYE-H03792008

PATIENT
  Sex: Female

DRUGS (5)
  1. PREMARIN [Suspect]
  2. PROVERA [Suspect]
  3. ESTRATEST H.S. [Suspect]
  4. CONJUGATED ESTROGENS [Suspect]
  5. OGEN [Suspect]
     Dosage: UNKNOWN
     Route: 061

REACTIONS (1)
  - BREAST CANCER [None]
